FAERS Safety Report 5833201-6 (Version None)
Quarter: 2008Q3

REPORT INFORMATION
  Report Type: 
  Country: None (occurrence: None)
  Receive Date: 20080731
  Receipt Date: 20080716
  Transmission Date: 20090109
  Serious: Yes (Death)
  Sender: FDA-Public Use
  Company Number: 2008AL005795

PATIENT
  Age: 72 Year
  Sex: Female
  Weight: 66.6788 kg

DRUGS (1)
  1. DIGOXIN [Suspect]
     Indication: TRICUSPID VALVE INCOMPETENCE
     Dosage: 0.25MG, DAILY, PO
     Route: 048
     Dates: start: 20040101, end: 20060416

REACTIONS (10)
  - ANOREXIA [None]
  - BRADYCARDIA [None]
  - CARDIAC DISORDER [None]
  - DIARRHOEA [None]
  - DYSPNOEA [None]
  - HYPOTENSION [None]
  - OEDEMA PERIPHERAL [None]
  - PHOTOPSIA [None]
  - SURGICAL FAILURE [None]
  - WEIGHT INCREASED [None]
